FAERS Safety Report 5554918-7 (Version None)
Quarter: 2007Q4

REPORT INFORMATION
  Report Type: 
  Country: None (occurrence: None)
  Receive Date: 20071213
  Receipt Date: 20071205
  Transmission Date: 20080405
  Serious: Yes (Other)
  Sender: FDA-Public Use
  Company Number: GB-ELI_LILLY_AND_COMPANY-GB200711000146

PATIENT
  Age: 32 Year
  Sex: Female
  Weight: 60 kg

DRUGS (4)
  1. FLUOXETINE [Suspect]
     Indication: DEPRESSION
     Dosage: 20 MG, UNK
     Route: 048
     Dates: start: 20070730, end: 20070815
  2. BECLOMETHASONE DIPROPIONATE [Concomitant]
     Indication: ASTHMA
     Dosage: 100 UG, 2/D
     Route: 055
     Dates: start: 20051117
  3. CO-CODAMOL [Concomitant]
     Indication: DYSMENORRHOEA
     Dosage: 2 D/F, 4/D
     Route: 048
     Dates: start: 20070730
  4. ALBUTEROL [Concomitant]
     Indication: ASTHMA
     Dosage: 100 UG, 4/D
     Route: 055
     Dates: start: 20051117

REACTIONS (3)
  - RASH ERYTHEMATOUS [None]
  - RASH MACULO-PAPULAR [None]
  - RASH PRURITIC [None]
